FAERS Safety Report 5082070-3 (Version None)
Quarter: 2006Q3

REPORT INFORMATION
  Report Type: 
  Country: None (occurrence: None)
  Receive Date: 20060811
  Receipt Date: 20060801
  Transmission Date: 20061208
  Serious: Yes (Other)
  Sender: FDA-Public Use
  Company Number: 2006092642

PATIENT
  Age: 60 Year
  Sex: Male

DRUGS (7)
  1. LYRICA [Suspect]
     Indication: SCIATICA
     Dosage: 150 MG (75 MG, 2 IN 1 D), ORAL
     Route: 048
     Dates: start: 20060601
  2. RAMIPRIL [Concomitant]
  3. NORVASC [Concomitant]
  4. PLAVIX [Concomitant]
  5. ACETYLSALICYLIC ACID (ACETYLSALICYCLIC ACID) [Concomitant]
  6. SIMOVIL (SIMVASTATIN) [Concomitant]
  7. ELATROLET (AMITRIPTYLINE HYDROCHLORIDE) [Concomitant]

REACTIONS (2)
  - BRADYCARDIA [None]
  - FEELING ABNORMAL [None]
